FAERS Safety Report 8479063-2 (Version None)
Quarter: 2012Q2

REPORT INFORMATION
  Report Type: 
  Country: None (occurrence: None)
  Receive Date: 20120629
  Receipt Date: 20120621
  Transmission Date: 20120825
  Serious: Yes (Other)
  Sender: FDA-Public Use
  Company Number: CA-JNJFOC-20120611257

PATIENT
  Sex: Male
  Weight: 83.2 kg

DRUGS (5)
  1. IMURAN [Concomitant]
     Route: 065
  2. REMICADE [Suspect]
     Indication: COLITIS ULCERATIVE
     Dosage: DOSE: ONCE EVERY 7 TO 8 WEEKS
     Route: 042
     Dates: start: 20100813
  3. ATIVAN [Concomitant]
     Route: 065
  4. REMICADE [Suspect]
     Indication: RHEUMATOID ARTHRITIS
     Dosage: DOSE: ONCE EVERY 7 TO 8 WEEKS
     Route: 042
     Dates: start: 20100813
  5. ASACOL [Concomitant]
     Route: 065

REACTIONS (2)
  - CONCUSSION [None]
  - FALL [None]
